FAERS Safety Report 16419625 (Version 2)
Quarter: 2020Q1

REPORT INFORMATION
  Report Type: Report from Study
  Country: PT (occurrence: PT)
  Receive Date: 20190612
  Receipt Date: 20200312
  Transmission Date: 20200409
  Serious: Yes (Hospitalization)
  Sender: FDA-Public Use
  Company Number: PT-ROCHE-2331264

PATIENT
  Age: 70 Year
  Sex: Female
  Weight: 54 kg

DRUGS (9)
  1. BISOPROLOL [Concomitant]
     Active Substance: BISOPROLOL
     Indication: EJECTION FRACTION DECREASED
     Dosage: ONGOING = CHECKED
     Route: 065
     Dates: start: 20180802
  2. PACLITAXEL. [Suspect]
     Active Substance: PACLITAXEL
     Indication: BREAST CANCER
     Dosage: MOST RECENT DOSE PRIOR TO THE EVENT:20/JUL/2017
     Route: 042
     Dates: start: 20170608, end: 20180323
  3. TRASTUZUMAB. [Suspect]
     Active Substance: TRASTUZUMAB
     Indication: BREAST CANCER
     Dosage: MOST RECENT DOSE PRIOR TO THE EVENT: 17/APR/2019
     Route: 041
     Dates: start: 20170608, end: 20180323
  4. PERTUZUMAB. [Suspect]
     Active Substance: PERTUZUMAB
     Indication: BREAST CANCER
     Dosage: MOST RECENT DOSE PRIOR TO THE EVENT: 12/JUL/2018
     Route: 042
     Dates: start: 20170608, end: 20170622
  5. PERINDOPRIL [Concomitant]
     Active Substance: PERINDOPRIL
     Indication: EJECTION FRACTION DECREASED
     Dosage: ONGOING = CHECKED
     Route: 065
     Dates: start: 20180426
  6. PIPERACILLIN. [Concomitant]
     Active Substance: PIPERACILLIN SODIUM
     Indication: PULMONARY EMBOLISM
     Dosage: ONGOING = CHECKED
     Route: 065
     Dates: start: 20190507
  7. FASLODEX [Suspect]
     Active Substance: FULVESTRANT
     Indication: BREAST CANCER
     Dosage: Q2W - EVERY TWO WEEKS
     Route: 030
     Dates: start: 20171102
  8. TAZOBACTAM [Concomitant]
     Active Substance: TAZOBACTAM
     Indication: PULMONARY EMBOLISM
     Dosage: ONGOING = CHECKED
     Route: 065
     Dates: start: 20190507
  9. ZOLEDRONIC ACID [Concomitant]
     Active Substance: ZOLEDRONIC ACID
     Dosage: ONGOING = CHECKED
     Route: 065
     Dates: start: 20171102

REACTIONS (1)
  - Pulmonary embolism [Not Recovered/Not Resolved]

NARRATIVE: CASE EVENT DATE: 20190506
